FAERS Safety Report 6200574-4 (Version None)
Quarter: 2009Q2

REPORT INFORMATION
  Report Type: 
  Country: None (occurrence: None)
  Receive Date: 20090522
  Receipt Date: 20090514
  Transmission Date: 20091009
  Serious: Yes (Death, Other)
  Sender: FDA-Public Use
  Company Number: BW-B.I. PHARMACEUTICALS,INC./RIDGEFIELD-2007-DE-07507GD

PATIENT
  Age: 29 Year
  Sex: Female

DRUGS (4)
  1. NEVIRAPINE [Suspect]
     Indication: HIV INFECTION
  2. STAVUDINE [Suspect]
     Indication: HIV INFECTION
  3. LAMIVUDINE [Suspect]
     Indication: HIV INFECTION
  4. ISONIAZID [Suspect]
     Indication: ANTIBIOTIC PROPHYLAXIS

REACTIONS (2)
  - ACUTE HEPATIC FAILURE [None]
  - HYPERLACTACIDAEMIA [None]
